FAERS Safety Report 10621267 (Version 1)
Quarter: 2014Q4

REPORT INFORMATION
  Report Type: Spontaneous
  Country: IT (occurrence: IT)
  Receive Date: 20141203
  Receipt Date: 20141203
  Transmission Date: 20150529
  Serious: Yes (Other)
  Sender: FDA-Public Use
  Company Number: IT-ACCORD-027359

PATIENT
  Age: 56 Year
  Sex: Female
  Weight: 93 kg

DRUGS (3)
  1. FLUOROURACILE AHCL [Suspect]
     Active Substance: FLUOROURACIL
     Indication: COLON CANCER METASTATIC
     Dosage: 50 MG/ML?BOLUS AT THE DOSE OF 400 MG/M2 AND IN CONTINUOUS INFUSION AT THE DOSE OF 1200 MG/M2
     Route: 042
     Dates: start: 20140410, end: 20140826
  2. IRINOTECAN MYLAN [Suspect]
     Active Substance: IRINOTECAN
     Indication: COLON CANCER METASTATIC
     Route: 042
     Dates: start: 20140410, end: 20140826
  3. BEVACIZUMAB [Concomitant]
     Active Substance: BEVACIZUMAB
     Indication: COLON CANCER METASTATIC
     Dosage: ALSO RECEIVED AT THE DOSE OF 400 MG (BATCH NO. B7033B02)
     Route: 042
     Dates: start: 20140410, end: 20140828

REACTIONS (2)
  - Diarrhoea [Recovered/Resolved]
  - Influenza [Recovered/Resolved]

NARRATIVE: CASE EVENT DATE: 20140909
